FAERS Safety Report 6703805-7 (Version None)
Quarter: 2010Q2

REPORT INFORMATION
  Report Type: 
  Country: None (occurrence: None)
  Receive Date: 20100430
  Receipt Date: 20100420
  Transmission Date: 20101027
  Serious: Yes (Hospitalization, Other)
  Sender: FDA-Public Use
  Company Number: JP-PFIZER INC-2010042310

PATIENT
  Age: 66 Year
  Sex: Female

DRUGS (4)
  1. CHAMPIX [Suspect]
     Indication: SMOKING CESSATION THERAPY
     Dosage: 1 MG, 2X/DAY
     Dates: start: 20100308
  2. ISOPROPYLANTIPYRINE/ACETAMINOPHEN/ALLYLISOPROPYLACETYLUREA/CAFFEINE [Suspect]
     Indication: HEADACHE
     Dosage: 1 G, 1X/DAY
     Route: 048
     Dates: start: 20100216, end: 20100325
  3. MYSLEE [Concomitant]
     Route: 048
  4. LITHIUM CARBONATE [Concomitant]
     Route: 048

REACTIONS (6)
  - DECREASED APPETITE [None]
  - DEHYDRATION [None]
  - DEPRESSION [None]
  - DIABETIC NEPHROPATHY [None]
  - FLUID INTAKE REDUCED [None]
  - RENAL FAILURE ACUTE [None]
